FAERS Safety Report 7594835-4 (Version None)
Quarter: 2011Q2

REPORT INFORMATION
  Report Type: 
  Country: None (occurrence: None)
  Receive Date: 20110615
  Receipt Date: 20110310
  Transmission Date: 20111010
  Serious: Yes (Other)
  Sender: FDA-Public Use
  Company Number: DSA_44929_2011

PATIENT
  Sex: Female
  Weight: 63.5036 kg

DRUGS (14)
  1. LITHIUM CARBONATE [Concomitant]
  2. BENZTROPINE MESYLATE [Concomitant]
  3. KLONOPIN [Concomitant]
  4. SEROQUEL [Concomitant]
  5. TRAZODONE HCL [Concomitant]
  6. XENAZINE [Suspect]
     Indication: DYSTONIA
     Dosage: (12.5 MG BID ORAL), (12.5 MG QD ORAL)
     Route: 048
     Dates: start: 20110128, end: 20110203
  7. XENAZINE [Suspect]
     Indication: INBORN ERROR OF METABOLISM
     Dosage: (12.5 MG BID ORAL), (12.5 MG QD ORAL)
     Route: 048
     Dates: start: 20110128, end: 20110203
  8. XENAZINE [Suspect]
     Indication: DYSTONIA
     Dosage: (12.5 MG BID ORAL), (12.5 MG QD ORAL)
     Route: 048
     Dates: start: 20110209
  9. XENAZINE [Suspect]
     Indication: INBORN ERROR OF METABOLISM
     Dosage: (12.5 MG BID ORAL), (12.5 MG QD ORAL)
     Route: 048
     Dates: start: 20110209
  10. XENAZINE [Suspect]
     Indication: DYSTONIA
     Dosage: (12.5 MG BID ORAL), (12.5 MG QD ORAL)
     Route: 048
     Dates: start: 20110101, end: 20110127
  11. XENAZINE [Suspect]
     Indication: INBORN ERROR OF METABOLISM
     Dosage: (12.5 MG BID ORAL), (12.5 MG QD ORAL)
     Route: 048
     Dates: start: 20110101, end: 20110127
  12. DEPAKOTE [Concomitant]
  13. PRIMIDONE [Concomitant]
  14. SYNTHROID [Concomitant]

REACTIONS (1)
  - SUICIDAL IDEATION [None]
